FAERS Safety Report 6434454-6 (Version None)
Quarter: 2009Q4

REPORT INFORMATION
  Report Type: 
  Country: None (occurrence: None)
  Receive Date: 20091110
  Receipt Date: 20091029
  Transmission Date: 20100525
  Serious: Yes (Other)
  Sender: FDA-Public Use
  Company Number: CN-PFIZER INC-2009284597

PATIENT
  Age: 28 Year
  Sex: Male

DRUGS (3)
  1. ZYVOX [Suspect]
     Indication: ENTEROCOCCAL INFECTION
     Dosage: 600 MG, 2X/DAY
     Route: 042
     Dates: start: 20090801, end: 20090101
  2. ZYVOX [Suspect]
     Dosage: 600 MG, 2X/DAY
     Dates: start: 20090101, end: 20090101
  3. WARFARIN [Suspect]

REACTIONS (1)
  - PERICARDIAL EFFUSION [None]
